FAERS Safety Report 9858293 (Version 3)
Quarter: 2014Q1

REPORT INFORMATION
  Report Type: Spontaneous
  Country: FR (occurrence: None)
  Receive Date: 20140129
  Receipt Date: 20140304
  Transmission Date: 20141002
  Serious: Yes (Hospitalization)
  Sender: FDA-Public Use
  Company Number: SYM-2014-15132

PATIENT
  Age: 74 Year
  Sex: Female

DRUGS (8)
  1. FLAGYL [Suspect]
     Indication: CLOSTRIDIUM DIFFICILE COLITIS
     Route: 048
     Dates: start: 20131126, end: 20131206
  2. CEFTRIAXONE [Suspect]
     Indication: CLOSTRIDIUM DIFFICILE COLITIS
     Dosage: 1 GM, DAILY, INTRAVENOUS (NOT OTHERWISE SPECIFIED)?
     Route: 042
     Dates: start: 20131126, end: 20131208
  3. DAFALGAN (PARACETAMOL) (PARACETAMOL) [Concomitant]
  4. PREVISCAN (PENTOXIFYLLINE) (PENTOXIFYLLINE) [Concomitant]
  5. KEPPRA (LEVETIRACETAM) (LEVETIRACETAM)? [Concomitant]
  6. BACLOFEN (BACLOFEN) (BACLOFEN) [Concomitant]
  7. VANCOMYCINE (VANCOMYCIN HYDROCHLORIDE) (VANCOMYCIN HYDROCHLORIDE) ? [Concomitant]
  8. LOVENOX (ENOXAPARIN SODIUM) (ENOXAPARIN SODIUM)? [Concomitant]

REACTIONS (9)
  - Hepatitis acute [None]
  - Pyelonephritis [None]
  - Renal failure [None]
  - Hyperlactacidaemia [None]
  - Abdominal distension [None]
  - Abdominal pain [None]
  - Colitis [None]
  - Inflammation [None]
  - Liver injury [None]
